FAERS Safety Report 12442044 (Version 1)
Quarter: 2016Q2

REPORT INFORMATION
  Report Type: Spontaneous
  Country: GB (occurrence: GB)
  Receive Date: 20160607
  Receipt Date: 20160607
  Transmission Date: 20160815
  Serious: Yes (Other)
  Sender: FDA-Public Use
  Company Number: GB-DRREDDYS-GER/UKI/16/0080211

PATIENT
  Age: 36 Year
  Sex: Male
  Weight: 73 kg

DRUGS (1)
  1. QUETIAPINE. [Suspect]
     Active Substance: QUETIAPINE
     Indication: BIPOLAR I DISORDER
     Dosage: MODIFIED RELEASE.
     Route: 048
     Dates: start: 20120201

REACTIONS (4)
  - Guttate psoriasis [Not Recovered/Not Resolved]
  - Vitamin D deficiency [Unknown]
  - Blood cholesterol increased [Unknown]
  - Pruritus [Not Recovered/Not Resolved]

NARRATIVE: CASE EVENT DATE: 20120404
